FAERS Safety Report 9922657 (Version 2)
Quarter: 2014Q1

REPORT INFORMATION
  Report Type: Spontaneous
  Country: GB (occurrence: GB)
  Receive Date: 20140225
  Receipt Date: 20140225
  Transmission Date: 20141002
  Serious: No
  Sender: FDA-Public Use
  Company Number: GB-009507513-1401GBR011726

PATIENT
  Age: 27 Year
  Sex: Female

DRUGS (1)
  1. NEXPLANON [Suspect]
     Dosage: UNK
     Route: 059
     Dates: start: 201209

REACTIONS (8)
  - Malaise [Unknown]
  - Pallor [Unknown]
  - Implant site swelling [Unknown]
  - Implant site pain [Unknown]
  - Implant site erythema [Unknown]
  - Device related infection [Unknown]
  - Nausea [Unknown]
  - Cellulitis [Recovered/Resolved]
